FAERS Safety Report 7423942 (Version 23)
Quarter: 2015Q4

REPORT INFORMATION
  Report Type: Spontaneous
  Country: CA (occurrence: CA)
  Receive Date: 20100617
  Receipt Date: 20151125
  Transmission Date: 20160305
  Serious: Yes (Other)
  Sender: FDA-Public Use
  Company Number: CA-ROCHE-GNE302975

PATIENT
  Age: 61 Year
  Sex: Female
  Weight: 79.09 kg

DRUGS (13)
  1. SENOKOT [Concomitant]
     Active Substance: SENNOSIDES
     Route: 065
     Dates: start: 20150404
  2. XOLAIR [Suspect]
     Active Substance: OMALIZUMAB
     Route: 058
     Dates: start: 20150709
  3. XOLAIR [Suspect]
     Active Substance: OMALIZUMAB
     Route: 058
     Dates: start: 20140421
  4. XOLAIR [Suspect]
     Active Substance: OMALIZUMAB
     Route: 058
     Dates: start: 20150212
  5. XOLAIR [Suspect]
     Active Substance: OMALIZUMAB
     Route: 058
     Dates: start: 20150625
  6. XOLAIR [Suspect]
     Active Substance: OMALIZUMAB
     Route: 058
     Dates: start: 20140811
  7. XOLAIR [Suspect]
     Active Substance: OMALIZUMAB
     Route: 058
     Dates: start: 20150917
  8. XOLAIR [Suspect]
     Active Substance: OMALIZUMAB
     Dosage: 375 MG, Q2W
     Route: 058
     Dates: start: 20100408
  9. XOLAIR [Suspect]
     Active Substance: OMALIZUMAB
     Route: 058
     Dates: start: 20130904
  10. XOLAIR [Suspect]
     Active Substance: OMALIZUMAB
     Route: 058
     Dates: start: 20150723
  11. XOLAIR [Suspect]
     Active Substance: OMALIZUMAB
     Indication: ASTHMA
     Route: 058
     Dates: start: 20100325
  12. XOLAIR [Suspect]
     Active Substance: OMALIZUMAB
     Route: 058
     Dates: start: 20130808
  13. XOLAIR [Suspect]
     Active Substance: OMALIZUMAB
     Route: 058
     Dates: start: 20150806

REACTIONS (32)
  - Intestinal obstruction [Unknown]
  - Wheezing [Unknown]
  - Pruritus [Unknown]
  - Vomiting [Unknown]
  - Hypertension [Unknown]
  - Fatigue [Unknown]
  - Cough [Unknown]
  - Respiratory disorder [Unknown]
  - Dyspnoea [Unknown]
  - Injection site pruritus [Unknown]
  - Malaise [Unknown]
  - Sinus headache [Unknown]
  - Pain [Unknown]
  - Headache [Unknown]
  - Chest discomfort [Unknown]
  - Intervertebral disc degeneration [Unknown]
  - Neck pain [Unknown]
  - Diarrhoea [Recovered/Resolved]
  - Fibromyalgia [Not Recovered/Not Resolved]
  - Abdominal pain upper [Unknown]
  - Joint swelling [Not Recovered/Not Resolved]
  - Erythema [Unknown]
  - Crepitations [Unknown]
  - Restless legs syndrome [Unknown]
  - Asthma [Unknown]
  - Musculoskeletal chest pain [Not Recovered/Not Resolved]
  - Respiratory distress [Unknown]
  - Body temperature decreased [Unknown]
  - Dyspnoea exertional [Unknown]
  - Dysphonia [Unknown]
  - Haemorrhage [Unknown]
  - Weight increased [Unknown]

NARRATIVE: CASE EVENT DATE: 20100325
